FAERS Safety Report 22921574 (Version 3)
Quarter: 2024Q2

REPORT INFORMATION
  Report Type: Spontaneous
  Country: PL (occurrence: PL)
  Receive Date: 20230908
  Receipt Date: 20240517
  Transmission Date: 20240715
  Serious: Yes (Death, Hospitalization, Other)
  Sender: FDA-Public Use
  Company Number: PL-ASTELLAS-2023US026764

PATIENT
  Age: 57 Year
  Sex: Female

DRUGS (2)
  1. XOSPATA [Suspect]
     Active Substance: GILTERITINIB
     Indication: Acute myeloid leukaemia recurrent
     Dosage: 120 MG, ONCE DAILY (3 CYCLES OF DOSAGE 120 MG/DAY)
     Route: 048
     Dates: start: 20230404, end: 202307
  2. XOSPATA [Suspect]
     Active Substance: GILTERITINIB
     Dosage: 200 MG, ONCE DAILY (CYCLE 4)
     Route: 048
     Dates: start: 202307

REACTIONS (11)
  - Multiple organ dysfunction syndrome [Fatal]
  - Granulocytopenia [Recovered/Resolved]
  - Blood creatine phosphokinase increased [Recovered/Resolved]
  - Alanine aminotransferase increased [Recovered/Resolved]
  - Aspartate aminotransferase increased [Recovered/Resolved]
  - Amylase increased [Recovered/Resolved]
  - Leukopenia [Unknown]
  - Neutropenia [Unknown]
  - Pneumonia [Fatal]
  - Bronchopulmonary aspergillosis [Fatal]
  - Therapy partial responder [Unknown]

NARRATIVE: CASE EVENT DATE: 20230404
